FAERS Safety Report 6685061-1 (Version None)
Quarter: 2010Q2

REPORT INFORMATION
  Report Type: 
  Country: None (occurrence: None)
  Receive Date: 20100416
  Receipt Date: 20100402
  Transmission Date: 20101027
  Serious: Yes (Death)
  Sender: FDA-Public Use
  Company Number: A0854856A

PATIENT
  Sex: Male

DRUGS (1)
  1. PROMACTA [Suspect]
     Dosage: 75MG PER DAY
     Route: 065
     Dates: start: 20091007, end: 20100101

REACTIONS (2)
  - DEATH [None]
  - DRUG INEFFECTIVE [None]
